FAERS Safety Report 10154139 (Version 1)
Quarter: 2014Q2

REPORT INFORMATION
  Report Type: Spontaneous
  Country: FR (occurrence: FR)
  Receive Date: 20140506
  Receipt Date: 20140506
  Transmission Date: 20141212
  Serious: Yes (Other)
  Sender: FDA-Public Use
  Company Number: FR-ROCHE-1393243

PATIENT
  Age: 57 Year
  Sex: Female

DRUGS (3)
  1. AVASTIN [Suspect]
     Indication: LUNG ADENOCARCINOMA
     Route: 065
  2. CARBOPLATIN [Concomitant]
     Indication: LUNG ADENOCARCINOMA
  3. ALIMTA [Concomitant]
     Indication: LUNG ADENOCARCINOMA

REACTIONS (2)
  - Anal fissure [Unknown]
  - Anal haemorrhage [Unknown]
